FAERS Safety Report 5424728-X (Version None)
Quarter: 2007Q3

REPORT INFORMATION
  Report Type: 
  Country: None (occurrence: None)
  Receive Date: 20070822
  Receipt Date: 20070822
  Transmission Date: 20080115
  Serious: Yes (Disabling)
  Sender: FDA-Public Use
  Company Number: None

PATIENT
  Age: 62 Year
  Sex: Female
  Weight: 127.0072 kg

DRUGS (1)
  1. LEVAQUIN [Suspect]
     Indication: RESPIRATORY TRACT INFECTION
     Dosage: 1 PER DAY 10 DAYS ORAL
     Route: 048
     Dates: start: 20070521, end: 20070530

REACTIONS (2)
  - ABASIA [None]
  - LOSS OF CONTROL OF LEGS [None]
